FAERS Safety Report 8373300-0 (Version None)
Quarter: 2012Q2

REPORT INFORMATION
  Report Type: 
  Country: None (occurrence: None)
  Receive Date: 20120521
  Receipt Date: 20110720
  Transmission Date: 20120825
  Serious: No
  Sender: FDA-Public Use
  Company Number: US-TEVA-2011001170

PATIENT
  Sex: Female
  Weight: 99.88 kg

DRUGS (3)
  1. TREANDA [Suspect]
     Indication: CHRONIC LYMPHOCYTIC LEUKAEMIA
     Route: 042
     Dates: start: 20110308
  2. RITUXAN [Suspect]
     Indication: CHRONIC LYMPHOCYTIC LEUKAEMIA
     Dates: start: 20110308
  3. NEULASTA [Concomitant]
     Dates: start: 20110310

REACTIONS (8)
  - DYSURIA [None]
  - ABDOMINAL PAIN [None]
  - CONSTIPATION [None]
  - INSOMNIA [None]
  - BACK PAIN [None]
  - FATIGUE [None]
  - URINARY TRACT INFECTION [None]
  - OEDEMA [None]
